FAERS Safety Report 5257204-8 (Version None)
Quarter: 2007Q1

REPORT INFORMATION
  Report Type: 
  Country: None (occurrence: None)
  Receive Date: 20070307
  Receipt Date: 20070226
  Transmission Date: 20070707
  Serious: Yes (Life-Threatening)
  Sender: FDA-Public Use
  Company Number: FR-GLAXOSMITHKLINE-B0460336A

PATIENT
  Age: 56 Year
  Sex: Male
  Weight: 80 kg

DRUGS (3)
  1. AUGMENTIN [Suspect]
     Indication: BRONCHITIS
     Dosage: 1G SINGLE DOSE
     Route: 048
     Dates: start: 20070210, end: 20070210
  2. ASPEGIC 1000 [Concomitant]
     Route: 048
     Dates: start: 19950615
  3. ZOCOR [Concomitant]
     Route: 048
     Dates: start: 19950615

REACTIONS (4)
  - ANGIOEDEMA [None]
  - DYSPNOEA [None]
  - HYPOAESTHESIA ORAL [None]
  - URTICARIA GENERALISED [None]
